FAERS Safety Report 15150547 (Version 1)
Quarter: 2018Q3

REPORT INFORMATION
  Report Type: Spontaneous
  Country: SE (occurrence: SE)
  Receive Date: 20180716
  Receipt Date: 20180716
  Transmission Date: 20181010
  Serious: Yes (Other)
  Sender: FDA-Public Use
  Company Number: SE-TEVA-2018-SE-927289

PATIENT
  Age: 38 Year
  Sex: Female

DRUGS (4)
  1. REMSIMA [Suspect]
     Active Substance: INFLIXIMAB
     Indication: ANKYLOSING SPONDYLITIS
     Dosage: GAVS VID TV? TILLF?LLEN
     Dates: start: 20170104
  2. ORUDIS [Concomitant]
     Active Substance: KETOPROFEN
     Dates: start: 20160407, end: 20170719
  3. METHOTREXATE. [Suspect]
     Active Substance: METHOTREXATE
     Indication: ANKYLOSING SPONDYLITIS
     Dosage: 10 MG/VECKA
     Route: 048
     Dates: start: 20161109, end: 20170719
  4. INFLECTRA [Suspect]
     Active Substance: INFLIXIMAB-DYYB
     Indication: ANKYLOSING SPONDYLITIS
     Dosage: 1 MG/ML 200 MG X1
     Route: 042
     Dates: start: 201702

REACTIONS (1)
  - Autoimmune hepatitis [Not Recovered/Not Resolved]

NARRATIVE: CASE EVENT DATE: 20170522
